FAERS Safety Report 20752334 (Version 1)
Quarter: 2022Q2

REPORT INFORMATION
  Report Type: Spontaneous
  Country: US (occurrence: None)
  Receive Date: 20220426
  Receipt Date: 20220426
  Transmission Date: 20220721
  Serious: No
  Sender: FDA-Public Use
  Company Number: US-ROCHE-2745424

PATIENT
  Sex: Female

DRUGS (3)
  1. ESBRIET [Suspect]
     Active Substance: PIRFENIDONE
     Indication: Idiopathic pulmonary fibrosis
     Dosage: THREE 267 MG TABLETS IN THE MORNING, NOON AND EVENING
     Route: 048
     Dates: start: 20201113
  2. ESBRIET [Suspect]
     Active Substance: PIRFENIDONE
     Route: 048
     Dates: start: 202011
  3. ESBRIET [Suspect]
     Active Substance: PIRFENIDONE
     Route: 048
     Dates: start: 202011

REACTIONS (7)
  - Dizziness [Recovered/Resolved with Sequelae]
  - Chromaturia [Not Recovered/Not Resolved]
  - Headache [Unknown]
  - Intentional product misuse [Unknown]
  - Paranasal sinus discomfort [Unknown]
  - Paranasal sinus hyposecretion [Unknown]
  - Nausea [Unknown]
